FAERS Safety Report 7613035-2 (Version None)
Quarter: 2011Q3

REPORT INFORMATION
  Report Type: 
  Country: None (occurrence: None)
  Receive Date: 20110713
  Receipt Date: 20110422
  Transmission Date: 20111222
  Serious: No
  Sender: FDA-Public Use
  Company Number: US-005197

PATIENT
  Sex: Male
  Weight: 70.3075 kg

DRUGS (10)
  1. FIRMAGON [Suspect]
     Indication: PROSTATE CANCER
     Dosage: (240 MG 1X)
     Dates: start: 20110421
  2. MUCINEX [Concomitant]
  3. MAGNESIUM [Concomitant]
  4. SIMVASTATIN [Concomitant]
  5. PLAVIX [Concomitant]
  6. SYNTHROID [Concomitant]
  7. LOSARTAN [Concomitant]
  8. LANSOPRAZOLE [Concomitant]
  9. APIRIN [Concomitant]
  10. AMLODIPINE BESYLATE [Concomitant]

REACTIONS (2)
  - INJECTION SITE PAIN [None]
  - INJECTION SITE HAEMATOMA [None]
